FAERS Safety Report 12636146 (Version 1)
Quarter: 2016Q3

REPORT INFORMATION
  Report Type: Report from Study
  Country: BR (occurrence: BR)
  Receive Date: 20160809
  Receipt Date: 20160809
  Transmission Date: 20161109
  Serious: Yes (Other)
  Sender: FDA-Public Use
  Company Number: ALCN2016BR005513

PATIENT
  Sex: Female
  Weight: 84 kg

DRUGS (1)
  1. TRAVATAN Z [Suspect]
     Active Substance: TRAVOPROST
     Indication: PROPHYLAXIS
     Dosage: 1 GTT, QD
     Route: 047

REACTIONS (3)
  - Deafness [Not Recovered/Not Resolved]
  - Blindness unilateral [Unknown]
  - Ocular hyperaemia [Not Recovered/Not Resolved]
